FAERS Safety Report 9608410 (Version 1)
Quarter: 2013Q4

REPORT INFORMATION
  Report Type: Spontaneous
  Country: DK (occurrence: None)
  Receive Date: 20131007
  Receipt Date: 20131007
  Transmission Date: 20140711
  Serious: Yes (Death)
  Sender: FDA-Public Use
  Company Number: SYM-2013-11232

PATIENT
  Age: 34 Year
  Sex: Male
  Weight: 90 kg

DRUGS (13)
  1. DIAZEPAM (DIAZEPAM) [Suspect]
     Indication: PRODUCT USED FOR UNKNOWN INDICATION
  2. VENLAFAXINE [Suspect]
     Indication: PRODUCT USED FOR UNKNOWN INDICATION
     Dates: start: 200511
  3. NITRAZEPAM [Suspect]
     Indication: PRODUCT USED FOR UNKNOWN INDICATION
  4. ZOLPIDEM [Suspect]
     Indication: PRODUCT USED FOR UNKNOWN INDICATION
  5. PREGABALIN [Suspect]
     Indication: PRODUCT USED FOR UNKNOWN INDICATION
  6. PANTOPRAZOLE [Suspect]
     Indication: PRODUCT USED FOR UNKNOWN INDICATION
  7. QUETIAPINE [Suspect]
     Indication: PRODUCT USED FOR UNKNOWN INDICATION
  8. SIMVASTATIN [Suspect]
     Indication: PRODUCT USED FOR UNKNOWN INDICATION
  9. INSULIN DETEMIR (INSULIN DETEMIR) [Suspect]
     Indication: TYPE 1 DIABETES MELLITUS
  10. PHENOXYMETHYLPENICILLIN [Suspect]
  11. OXYCODONE [Suspect]
     Indication: PRODUCT USED FOR UNKNOWN INDICATION
  12. HALOPERIDOL [Suspect]
     Indication: PRODUCT USED FOR UNKNOWN INDICATION
  13. ETODOLAC [Suspect]
     Indication: PRODUCT USED FOR UNKNOWN INDICATION

REACTIONS (6)
  - Toxicity to various agents [None]
  - Accidental death [None]
  - Drug level increased [None]
  - Blood ethanol increased [None]
  - Alcohol use [None]
  - Metabolic disorder [None]
